FAERS Safety Report 6395061-7 (Version None)
Quarter: 2009Q4

REPORT INFORMATION
  Report Type: 
  Country: None (occurrence: None)
  Receive Date: 20091009
  Receipt Date: 20090928
  Transmission Date: 20100525
  Serious: Yes (Hospitalization, Other)
  Sender: FDA-Public Use
  Company Number: JP-PFIZER INC-2009263411

PATIENT
  Age: 45 Year

DRUGS (7)
  1. SALAZOPYRIN [Suspect]
     Indication: COLITIS ULCERATIVE
     Dosage: 2000 MG, 2X/DAY
     Route: 048
  2. UNASYN [Concomitant]
     Route: 042
     Dates: start: 20090817, end: 20090826
  3. TAKEPRON [Concomitant]
     Dosage: UNK
     Route: 048
     Dates: end: 20090831
  4. BIO THREE [Concomitant]
     Dosage: UNK
     Route: 048
     Dates: end: 20090831
  5. PREDONINE [Concomitant]
     Dosage: UNK
     Route: 042
  6. MEROPEN [Concomitant]
     Route: 042
     Dates: start: 20090827, end: 20090830
  7. AMIKACIN SULFATE [Concomitant]
     Route: 042
     Dates: start: 20090817, end: 20090826

REACTIONS (2)
  - MENINGITIS ASEPTIC [None]
  - PULMONARY EMBOLISM [None]
